FAERS Safety Report 10014397 (Version 1)
Quarter: 2014Q1

REPORT INFORMATION
  Report Type: Report from Study
  Country: MX (occurrence: MX)
  Receive Date: 20140317
  Receipt Date: 20140317
  Transmission Date: 20141002
  Serious: Yes (Other)
  Sender: FDA-Public Use
  Company Number: MX-ROCHE-1365023

PATIENT
  Age: 58 Year
  Sex: Male
  Weight: 74 kg

DRUGS (2)
  1. AVASTIN [Suspect]
     Indication: RENAL CANCER METASTATIC
     Route: 065
  2. INTERFERON ALFA-2A [Suspect]
     Indication: RENAL CANCER METASTATIC
     Route: 065

REACTIONS (4)
  - Asthenia [Unknown]
  - Pyrexia [Unknown]
  - Disease progression [Unknown]
  - Febrile neutropenia [Unknown]
